FAERS Safety Report 4415520-3 (Version None)
Quarter: 2004Q3

REPORT INFORMATION
  Report Type: 
  Country: None (occurrence: None)
  Receive Date: 20040730
  Receipt Date: 20040719
  Transmission Date: 20050211
  Serious: Yes (Hospitalization, Other)
  Sender: FDA-Public Use
  Company Number: HQWYE234519JUL04

PATIENT
  Age: 52 Year
  Sex: Female

DRUGS (3)
  1. PREMELLE (CONJUGATED ESTORGENS/MEDROXYPROGESTERONE ACETATE, TABLET, UN [Suspect]
     Indication: HORMONE REPLACEMENT THERAPY
     Dosage: UNSPECIFIED DOSAGE ORAL
     Route: 048
     Dates: start: 20021211, end: 20040415
  2. PREMELLE (CONJUGATED ESTORGENS/MEDROXYPROGESTERONE ACETATE, TABLET, UN [Suspect]
     Indication: HORMONE REPLACEMENT THERAPY
     Dosage: UNSPECIFIED DOSAGE ORAL
     Route: 048
     Dates: start: 20040522
  3. CLOTRIMAZOLE (CLOTRIMAZOLE) [Concomitant]

REACTIONS (17)
  - AKINESIA [None]
  - AORTIC ATHEROSCLEROSIS [None]
  - ARRHYTHMIA [None]
  - BLOOD CHLORIDE INCREASED [None]
  - BLOOD GLUCOSE INCREASED [None]
  - BLOOD POTASSIUM DECREASED [None]
  - BLOOD TRIGLYCERIDES INCREASED [None]
  - CARDIAC DISORDER [None]
  - HAEMATOCRIT DECREASED [None]
  - HAEMOGLOBIN DECREASED [None]
  - HIGH DENSITY LIPOPROTEIN DECREASED [None]
  - HYPOKINESIA [None]
  - MITRAL VALVE CALCIFICATION [None]
  - MITRAL VALVE INCOMPETENCE [None]
  - MYOCARDIAL INFARCTION [None]
  - PULMONARY HYPERTENSION [None]
  - VENTRICULAR DYSFUNCTION [None]
